FAERS Safety Report 8858731 (Version 1)
Quarter: 2012Q4

REPORT INFORMATION
  Report Type: Spontaneous
  Country: US (occurrence: None)
  Receive Date: 20121023
  Receipt Date: 20121023
  Transmission Date: 20130627
  Serious: Yes (Other)
  Sender: FDA-Public Use
  Company Number: None

PATIENT
  Age: 65 Year
  Sex: Female
  Weight: 88.6 kg

DRUGS (1)
  1. DIVALPROEX SODIUM [Suspect]
     Indication: SCHIZOPHRENIA
     Dosage: 250 mg 1 QAM; 2 QHS Orally
     Route: 048
     Dates: start: 20120426, end: 201209

REACTIONS (3)
  - Drug ineffective [None]
  - Rash [None]
  - Rash [None]
